FAERS Safety Report 5261877-3 (Version None)
Quarter: 2007Q1

REPORT INFORMATION
  Report Type: 
  Country: None (occurrence: None)
  Receive Date: 20070310
  Receipt Date: 20070228
  Transmission Date: 20070707
  Serious: Yes (Other)
  Sender: FDA-Public Use
  Company Number: 2006UW23940

PATIENT
  Sex: Female
  Weight: 49.1 kg

DRUGS (5)
  1. SEROQUEL [Suspect]
     Indication: BIPOLAR DISORDER
     Route: 048
  2. SEROQUEL [Suspect]
     Indication: DEPRESSION
     Route: 048
  3. SEROQUEL [Suspect]
     Indication: SLEEP DISORDER
     Route: 048
  4. TRILAFON [Concomitant]
  5. PAXIL [Concomitant]

REACTIONS (3)
  - DIABETES MELLITUS [None]
  - HYPERPROLACTINAEMIA [None]
  - PANCREATITIS [None]
